FAERS Safety Report 8514914-4 (Version None)
Quarter: 2012Q3

REPORT INFORMATION
  Report Type: 
  Country: None (occurrence: None)
  Receive Date: 20120717
  Receipt Date: 20120709
  Transmission Date: 20120928
  Serious: Yes (Other)
  Sender: FDA-Public Use
  Company Number: US-ASTRAZENECA-2012SE46780

PATIENT
  Age: 44 Year
  Sex: Female
  Weight: 72.6 kg

DRUGS (12)
  1. BISACODYL [Concomitant]
  2. PROMETHAZINE [Concomitant]
     Route: 048
  3. BUSPIRONE HCL [Concomitant]
  4. SEROQUEL XR [Suspect]
     Indication: BIPOLAR DISORDER
     Route: 048
     Dates: start: 20111001
  5. ACYCLOVIR [Concomitant]
  6. VENTOLIN HFA [Concomitant]
     Route: 055
  7. GRALISE [Concomitant]
     Dosage: 1800MG DOWN TO 600MG THEN SHE WILL BE TAKING 300MG TONIGHT
  8. RESTORIL [Concomitant]
  9. CELEXA [Concomitant]
     Route: 048
  10. BENADRYL [Concomitant]
     Indication: URTICARIA
  11. SEROQUEL XR [Suspect]
     Indication: DEPRESSION
     Route: 048
     Dates: start: 20111001
  12. HYDROCODONE [Concomitant]

REACTIONS (5)
  - ALOPECIA [None]
  - UPPER-AIRWAY COUGH SYNDROME [None]
  - HEPATITIS C [None]
  - WEIGHT INCREASED [None]
  - FATIGUE [None]
